FAERS Safety Report 20369055 (Version 1)
Quarter: 2022Q1

REPORT INFORMATION
  Report Type: Spontaneous
  Country: US (occurrence: None)
  Receive Date: 20220121
  Receipt Date: 20220121
  Transmission Date: 20220423
  Serious: Yes (Death)
  Sender: FDA-Public Use
  Company Number: None

PATIENT
  Age: 66 Year
  Sex: Female
  Weight: 101.6 kg

DRUGS (7)
  1. CYCLOSPORINE [Suspect]
     Active Substance: CYCLOSPORINE
     Indication: Renal transplant
     Dosage: FREQUENCY : TWICE A DAY;?
     Route: 048
     Dates: start: 20201125, end: 20220118
  2. MYCOPHENOLIC ACID [Suspect]
     Active Substance: MYCOPHENOLIC ACID
     Indication: Renal transplant
     Dosage: FREQUENCY : TWICE A DAY;?
     Route: 048
     Dates: start: 20201125, end: 20220118
  3. ELIQUIS [Concomitant]
  4. DILTIAZEM XR [Concomitant]
  5. INSULIN [Concomitant]
  6. LISPRO [Concomitant]
  7. TRESIBA [Concomitant]

REACTIONS (3)
  - Intestinal mass [None]
  - Sepsis [None]
  - COVID-19 [None]

NARRATIVE: CASE EVENT DATE: 20220118
